FAERS Safety Report 6387099-0 (Version None)
Quarter: 2009Q4

REPORT INFORMATION
  Report Type: 
  Country: None (occurrence: None)
  Receive Date: 20091002
  Receipt Date: 20090925
  Transmission Date: 20100525
  Serious: No
  Sender: FDA-Public Use
  Company Number: US-B.I. PHARMACEUTICALS,INC./RIDGEFIELD-2009-BP-11380BP

PATIENT
  Sex: Male

DRUGS (13)
  1. SPIRIVA [Suspect]
     Indication: CHRONIC OBSTRUCTIVE PULMONARY DISEASE
     Dosage: 18 MCG
     Route: 055
     Dates: start: 20090801
  2. SPIRIVA [Suspect]
     Indication: EMPHYSEMA
     Dosage: 18 MCG
     Route: 055
     Dates: start: 20070101, end: 20080101
  3. ALBUTEROL [Concomitant]
     Indication: EMPHYSEMA
     Route: 055
     Dates: start: 20060101
  4. JANUVIA [Concomitant]
     Indication: DIABETES MELLITUS
     Dates: start: 20040101
  5. FLUTICASONE [Concomitant]
     Indication: MULTIPLE ALLERGIES
     Dates: start: 20040101
  6. ALLEGRA D 24 HOUR [Concomitant]
     Indication: MULTIPLE ALLERGIES
     Dates: start: 19890101
  7. ZOLOFT [Concomitant]
     Indication: DEPRESSION
     Dates: start: 19940101
  8. METFORMIN [Concomitant]
     Indication: DIABETES MELLITUS
     Dates: start: 20040101
  9. SYMBICORT [Concomitant]
     Indication: CHRONIC OBSTRUCTIVE PULMONARY DISEASE
     Dates: start: 20060101
  10. SYMBICORT [Concomitant]
     Indication: EMPHYSEMA
  11. ASCORBIC ACID [Concomitant]
     Indication: SUPPLEMENTATION THERAPY
  12. MULTI-VITAMIN [Concomitant]
     Indication: SUPPLEMENTATION THERAPY
  13. VITAMIN E [Concomitant]
     Indication: SUPPLEMENTATION THERAPY

REACTIONS (3)
  - DRY MOUTH [None]
  - GASTROOESOPHAGEAL REFLUX DISEASE [None]
  - INSOMNIA [None]
